FAERS Safety Report 10080808 (Version 1)
Quarter: 2014Q2

REPORT INFORMATION
  Report Type: Spontaneous
  Country: US (occurrence: None)
  Receive Date: 20140415
  Receipt Date: 20140415
  Transmission Date: 20141212
  Serious: No
  Sender: FDA-Public Use
  Company Number: None

PATIENT
  Sex: Female
  Weight: 88.54 kg

DRUGS (2)
  1. NORCO 10/325 (WATSON LABORATORIES) [Suspect]
     Dosage: 10/325, 06 HRS, ORALLY?
     Route: 048
     Dates: start: 20120413, end: 20130109
  2. LORTAB 10/500 [Concomitant]

REACTIONS (1)
  - Pruritus [None]
